FAERS Safety Report 7541288-8 (Version None)
Quarter: 2011Q2

REPORT INFORMATION
  Report Type: 
  Country: None (occurrence: None)
  Receive Date: 20110610
  Receipt Date: 20110606
  Transmission Date: 20111010
  Serious: Yes (Other)
  Sender: FDA-Public Use
  Company Number: US-RB-027350-11

PATIENT
  Age: 6 Year
  Sex: Male

DRUGS (1)
  1. SUBOXONE [Suspect]
     Indication: ACCIDENTAL EXPOSURE
     Dosage: SUBLINGUAL FILM- TOOK 2- 8 MG FILM STRIP
     Route: 048
     Dates: start: 20110427, end: 20110427

REACTIONS (5)
  - ACCIDENTAL EXPOSURE [None]
  - VOMITING [None]
  - COORDINATION ABNORMAL [None]
  - HALLUCINATION [None]
  - RESPIRATORY RATE DECREASED [None]
